FAERS Safety Report 7070878-4 (Version None)
Quarter: 2010Q4

REPORT INFORMATION
  Report Type: 
  Country: None (occurrence: None)
  Receive Date: 20101029
  Receipt Date: 20101026
  Transmission Date: 20110411
  Serious: Yes (Other)
  Sender: FDA-Public Use
  Company Number: GB-PFIZER INC-2010135146

PATIENT
  Age: 76 Year

DRUGS (6)
  1. PEGVISOMANT [Suspect]
     Dosage: 5 MG, ALTERNATE DAY
     Dates: start: 20050516
  2. ATENOLOL [Concomitant]
     Dosage: UNK
  3. NICORANDIL [Concomitant]
     Dosage: UNK
  4. ACETYLSALICYLIC ACID [Concomitant]
     Dosage: UNK
  5. FRUSEMIDE [Concomitant]
     Dosage: UNK
  6. NITROGLYCERIN [Concomitant]
     Dosage: UNK

REACTIONS (2)
  - ARTERIOSCLEROSIS CORONARY ARTERY [None]
  - MYOCARDIAL ISCHAEMIA [None]
